FAERS Safety Report 11098247 (Version 1)
Quarter: 2015Q2

REPORT INFORMATION
  Report Type: Spontaneous
  Country: US (occurrence: US)
  Receive Date: 20150507
  Receipt Date: 20150507
  Transmission Date: 20150821
  Serious: No
  Sender: FDA-Public Use
  Company Number: US-PFIZER INC-2015148471

PATIENT
  Age: 69 Year
  Sex: Female
  Weight: 52 kg

DRUGS (1)
  1. ADVIL [Suspect]
     Active Substance: IBUPROFEN
     Indication: HEADACHE
     Dosage: 200 MG, UNK
     Dates: start: 1995

REACTIONS (2)
  - Product quality issue [Unknown]
  - Drug ineffective [Unknown]
